FAERS Safety Report 19484100 (Version 4)
Quarter: 2022Q1

REPORT INFORMATION
  Report Type: Report from Study
  Country: CA (occurrence: CA)
  Receive Date: 20210702
  Receipt Date: 20220311
  Transmission Date: 20220423
  Serious: Yes (Other)
  Sender: FDA-Public Use
  Company Number: CA-ABBVIE-21K-028-3970788-00

PATIENT
  Age: 68 Year
  Sex: Male

DRUGS (2)
  1. RINVOQ [Suspect]
     Active Substance: UPADACITINIB
     Indication: Rheumatoid arthritis
     Route: 048
     Dates: start: 20200918
  2. RINVOQ [Suspect]
     Active Substance: UPADACITINIB
     Route: 048

REACTIONS (2)
  - Myocardial infarction [Recovering/Resolving]
  - Arthropathy [Unknown]

NARRATIVE: CASE EVENT DATE: 20210623
